FAERS Safety Report 21258411 (Version 1)
Quarter: 2022Q3

REPORT INFORMATION
  Report Type: Spontaneous
  Country: US (occurrence: US)
  Receive Date: 20220826
  Receipt Date: 20220826
  Transmission Date: 20221027
  Serious: Yes (Hospitalization, Other)
  Sender: FDA-Public Use
  Company Number: US-Accord-274862

PATIENT
  Age: 61 Year
  Sex: Male

DRUGS (3)
  1. FINGOLIMOD [Suspect]
     Active Substance: FINGOLIMOD
     Indication: Relapsing-remitting multiple sclerosis
  2. AZITHROCIN [Concomitant]
     Indication: Sinusitis
  3. METHYLPREDNISOLONE [Concomitant]
     Active Substance: METHYLPREDNISOLONE
     Indication: Sinusitis
     Route: 048

REACTIONS (2)
  - Cerebral venous thrombosis [Recovering/Resolving]
  - Cryptococcal fungaemia [Recovering/Resolving]
